FAERS Safety Report 24271639 (Version 3)
Quarter: 2024Q3

REPORT INFORMATION
  Report Type: Spontaneous
  Country: NO (occurrence: NO)
  Receive Date: 20240902
  Receipt Date: 20240919
  Transmission Date: 20241016
  Serious: Yes (Hospitalization, Other)
  Sender: CURRAX PHARMACEUTICALS
  Company Number: NO-NALPROPION PHARMACEUTICALS INC.-NO-2024CUR003928

PATIENT
  Age: 56 Year
  Sex: Male

DRUGS (3)
  1. BUPROPION HYDROCHLORIDE\NALTREXONE HYDROCHLORIDE [Suspect]
     Active Substance: BUPROPION HYDROCHLORIDE\NALTREXONE HYDROCHLORIDE
     Indication: Overweight
     Dosage: STRENGTH: 8/90 MG UNKNOWN DOSE AND FREQUENCY
     Route: 048
     Dates: start: 202107
  2. BUPROPION HYDROCHLORIDE\NALTREXONE HYDROCHLORIDE [Suspect]
     Active Substance: BUPROPION HYDROCHLORIDE\NALTREXONE HYDROCHLORIDE
     Dosage: STRENGTH: 8/90 MG, 6 TABLETS PER DAY
     Route: 048
     Dates: end: 202204
  3. CLOXACILLIN SODIUM [Suspect]
     Active Substance: CLOXACILLIN SODIUM
     Indication: Product used for unknown indication
     Dosage: UNK
     Route: 042

REACTIONS (10)
  - Drug reaction with eosinophilia and systemic symptoms [Recovering/Resolving]
  - C-reactive protein increased [Not Recovered/Not Resolved]
  - Blood pressure decreased [Not Recovered/Not Resolved]
  - Pyrexia [Not Recovered/Not Resolved]
  - Rash [Not Recovered/Not Resolved]
  - Diarrhoea [Not Recovered/Not Resolved]
  - Sick leave [Not Recovered/Not Resolved]
  - Nausea [Unknown]
  - Blood pressure increased [Unknown]
  - Product use issue [Unknown]

NARRATIVE: CASE EVENT DATE: 20220426
